FAERS Safety Report 4349693-8 (Version None)
Quarter: 2004Q1

REPORT INFORMATION
  Report Type: 
  Country: None (occurrence: None)
  Receive Date: 20040329
  Receipt Date: 20031219
  Transmission Date: 20041129
  Serious: No
  Sender: FDA-Public Use
  Company Number: USA031255199

PATIENT
  Age: 10 Year
  Sex: Male
  Weight: 35 kg

DRUGS (3)
  1. STRATTERA [Suspect]
     Dosage: 60 MG/DAY
     Dates: start: 20030401
  2. WELLBUTRIN [Concomitant]
  3. FLOVENT (FLUTICASON PROPIONATE) [Concomitant]

REACTIONS (9)
  - ANOREXIA [None]
  - APATHY [None]
  - DYSPEPSIA [None]
  - FOOD AVERSION [None]
  - PRESCRIBED OVERDOSE [None]
  - RETCHING [None]
  - SOMNOLENCE [None]
  - VOMITING [None]
  - WEIGHT DECREASED [None]
